FAERS Safety Report 16821236 (Version 9)
Quarter: 2020Q3

REPORT INFORMATION
  Report Type: Report from Study
  Country: None (occurrence: JP)
  Receive Date: 20190918
  Receipt Date: 20200922
  Transmission Date: 20201102
  Serious: Yes (Hospitalization)
  Sender: FDA-Public Use
  Company Number: JP-ABBVIE-19K-087-2929767-00

PATIENT
  Age: 52 Year
  Sex: Female
  Weight: 59 kg

DRUGS (4)
  1. APOMORPHINE HYDROCHLORIDE HEMIHYDRATE [Concomitant]
     Active Substance: APOMORPHINE HYDROCHLORIDE
     Indication: PARKINSON^S DISEASE
     Dosage: 30 MG 0.3 TIMES A DAY
     Route: 058
  2. DUODOPA [Suspect]
     Active Substance: CARBIDOPA\LEVODOPA
  3. DUODOPA [Suspect]
     Active Substance: CARBIDOPA\LEVODOPA
     Indication: PARKINSON^S DISEASE
     Dosage: MD: 5.3 ML?CD: 1.7 ML/HR  16 HRS?ED: 3.0 ML/UNIT  3 TIMES
     Route: 050
     Dates: start: 20190604
  4. ROTIGOTINE [Concomitant]
     Active Substance: ROTIGOTINE
     Indication: PARKINSON^S DISEASE
     Route: 062

REACTIONS (6)
  - Ovarian germ cell teratoma [Recovered/Resolved]
  - Speech disorder [Unknown]
  - Mobility decreased [Unknown]
  - Stoma site extravasation [Unknown]
  - Oxygen saturation decreased [Recovered/Resolved]
  - On and off phenomenon [Unknown]

NARRATIVE: CASE EVENT DATE: 2019
